FAERS Safety Report 22525432 (Version 1)
Quarter: 2023Q2

REPORT INFORMATION
  Report Type: Spontaneous
  Country: JP (occurrence: JP)
  Receive Date: 20230606
  Receipt Date: 20230606
  Transmission Date: 20230722
  Serious: Yes (Other)
  Sender: FDA-Public Use
  Company Number: JP-SUN PHARMACEUTICAL INDUSTRIES LTD-2023RR-392418

PATIENT
  Age: 62 Year
  Sex: Male

DRUGS (3)
  1. ROSUVASTATIN [Interacting]
     Active Substance: ROSUVASTATIN
     Indication: Dyslipidaemia
     Dosage: 10 MILLIGRAM, DAILY
     Route: 065
  2. VADADUSTAT [Interacting]
     Active Substance: VADADUSTAT
     Indication: Anaemia
     Dosage: UNK
     Route: 065
  3. EPOETIN BETA\POLYETHYLENE GLYCOL [Interacting]
     Active Substance: ERYTHROPOIETIN\POLYETHYLENE GLYCOLS
     Indication: Product used for unknown indication
     Dosage: 100 MICROGRAM, UNK
     Route: 065

REACTIONS (2)
  - Rhabdomyolysis [Recovering/Resolving]
  - Drug interaction [Unknown]
